FAERS Safety Report 7351549-3 (Version None)
Quarter: 2011Q1

REPORT INFORMATION
  Report Type: 
  Country: None (occurrence: None)
  Receive Date: 20110314
  Receipt Date: 20110309
  Transmission Date: 20110831
  Serious: Yes (Other)
  Sender: FDA-Public Use
  Company Number: US-AMGEN-USASP2011013294

PATIENT
  Age: 60 Year
  Sex: Female

DRUGS (11)
  1. CLONIDINE [Concomitant]
  2. METOPROLOL TARTRATE [Concomitant]
  3. PROLIA [Suspect]
     Indication: OSTEOPOROSIS POSTMENOPAUSAL
     Dosage: 60 MG, Q6MO
     Dates: start: 20100101
  4. SYNTHROID [Concomitant]
  5. PREDNISONE [Concomitant]
  6. CELLCEPT [Concomitant]
  7. VITAMIN A [Concomitant]
  8. B COMPLEX                          /00212701/ [Concomitant]
  9. LASIX [Concomitant]
  10. PLAQUENIL [Concomitant]
  11. HYDRALAZINE [Concomitant]

REACTIONS (6)
  - NEUROPATHY PERIPHERAL [None]
  - CYSTITIS [None]
  - JOINT SWELLING [None]
  - BACK PAIN [None]
  - ARTHRALGIA [None]
  - FEELING HOT [None]
